FAERS Safety Report 24297676 (Version 1)
Quarter: 2024Q3

REPORT INFORMATION
  Report Type: Spontaneous
  Country: US (occurrence: None)
  Receive Date: 20240906
  Receipt Date: 20240906
  Transmission Date: 20241016
  Serious: Yes (Death)
  Sender: Public
  Company Number: None

PATIENT
  Age: 69 Year
  Sex: Female
  Weight: 72.6 kg

DRUGS (7)
  1. TIKOSYN [Suspect]
     Active Substance: DOFETILIDE
     Indication: Atrial fibrillation
     Dates: start: 20240903, end: 20240905
  2. atorvastatin 40 mg daily [Concomitant]
     Dates: start: 20240903, end: 20240905
  3. rivaroxaban 20 mg daily [Concomitant]
     Dates: start: 20240903, end: 20240905
  4. sacubitril-valsartan 24-26 mg 1 tablet daily [Concomitant]
     Dates: start: 20240903, end: 20240905
  5. spironolactone 12.5 mg daily [Concomitant]
     Dates: start: 20240903, end: 20240905
  6. potassium bicarbonate 25 mEq once [Concomitant]
     Dates: start: 20240904, end: 20240904
  7. potassium bicarbonate 25 mEq once [Concomitant]
     Dates: start: 20240905, end: 20240905

REACTIONS (5)
  - Creatinine renal clearance decreased [None]
  - Unresponsive to stimuli [None]
  - Pulse absent [None]
  - Torsade de pointes [None]
  - Cardiac arrest [None]

NARRATIVE: CASE EVENT DATE: 20240905
